FAERS Safety Report 7714831-3 (Version None)
Quarter: 2011Q3

REPORT INFORMATION
  Report Type: 
  Country: None (occurrence: None)
  Receive Date: 20110829
  Receipt Date: 20110819
  Transmission Date: 20111222
  Serious: Yes (Hospitalization, Other)
  Sender: FDA-Public Use
  Company Number: US-ASTELLAS-2011US004100

PATIENT
  Age: 49 Year
  Sex: Male
  Weight: 56 kg

DRUGS (9)
  1. MYFORTIC [Concomitant]
     Indication: PRODUCT USED FOR UNKNOWN INDICATION
     Dosage: 540 MG, BID
     Route: 048
  2. NORVASC [Concomitant]
     Indication: PRODUCT USED FOR UNKNOWN INDICATION
     Dosage: 10 MG, UID/QD
     Route: 048
  3. ASPIRIN [Concomitant]
     Indication: PRODUCT USED FOR UNKNOWN INDICATION
     Dosage: 325 MG, UID/QD
     Route: 048
  4. PLAVIX [Concomitant]
     Indication: PRODUCT USED FOR UNKNOWN INDICATION
     Dosage: 75 MG, UID/QD
     Route: 048
  5. AMEVIVE [Suspect]
     Indication: RENAL TRANSPLANT
     Dosage: 15 MG, WEEKLY
     Route: 058
     Dates: start: 20101220, end: 20110310
  6. TRICOR [Concomitant]
     Indication: PRODUCT USED FOR UNKNOWN INDICATION
     Dosage: 145 MG, UID/QD
     Route: 048
  7. METOPROLOL TARTRATE [Concomitant]
     Indication: PRODUCT USED FOR UNKNOWN INDICATION
     Dosage: 75 MG, BID
     Route: 048
  8. LEVOTHYROXINE SODIUM [Concomitant]
     Indication: PRODUCT USED FOR UNKNOWN INDICATION
     Dosage: 125 UG, UID/QD
     Route: 048
  9. BACTRIM DS [Concomitant]
     Indication: PRODUCT USED FOR UNKNOWN INDICATION
     Dosage: 400/80 UID/QD
     Route: 048

REACTIONS (2)
  - GASTROENTERITIS [None]
  - KIDNEY TRANSPLANT REJECTION [None]
